FAERS Safety Report 16689149 (Version 1)
Quarter: 2019Q3

REPORT INFORMATION
  Report Type: Spontaneous
  Country: US (occurrence: US)
  Receive Date: 20190809
  Receipt Date: 20190809
  Transmission Date: 20191004
  Serious: No
  Sender: FDA-Public Use
  Company Number: US-ASTRAZENECA-2019SF01716

PATIENT
  Age: 60 Year
  Sex: Female

DRUGS (2)
  1. BEVESPI AEROSPHERE [Suspect]
     Active Substance: FORMOTEROL FUMARATE\GLYCOPYRROLATE
     Indication: CHRONIC OBSTRUCTIVE PULMONARY DISEASE
     Dosage: 9/4.8 MCG 2 PUFFS TWICE A DAY
     Route: 055
     Dates: start: 20190628
  2. NUCALA [Concomitant]
     Active Substance: MEPOLIZUMAB
     Dosage: UNKNOWN
     Route: 065

REACTIONS (3)
  - Cough [Unknown]
  - Dyspnoea [Unknown]
  - Asthma [Unknown]
